FAERS Safety Report 7694261-3 (Version None)
Quarter: 2011Q3

REPORT INFORMATION
  Report Type: 
  Country: None (occurrence: None)
  Receive Date: 20110819
  Receipt Date: 20110810
  Transmission Date: 20111222
  Serious: Yes (Hospitalization, Disabling)
  Sender: FDA-Public Use
  Company Number: JP-GLAXOSMITHKLINE-B0715062A

PATIENT
  Sex: Male
  Weight: 45 kg

DRUGS (7)
  1. ONON [Concomitant]
     Dosage: 450MG PER DAY
     Route: 048
     Dates: end: 20090129
  2. HEPARIN [Concomitant]
     Route: 042
     Dates: start: 20090113, end: 20090210
  3. ALKERAN [Suspect]
     Indication: STEM CELL TRANSPLANT
     Dosage: 100MGM2 PER DAY
     Route: 042
     Dates: start: 20090113, end: 20090114
  4. MUCOSTA [Concomitant]
     Dosage: 300MG PER DAY
     Route: 048
     Dates: end: 20090129
  5. KYTRIL [Concomitant]
     Route: 042
     Dates: start: 20090113, end: 20090116
  6. POTASSIUM CHLORIDE [Concomitant]
     Route: 042
     Dates: start: 20090113, end: 20090116
  7. THEOPHYLLINE [Concomitant]
     Dosage: 400MG PER DAY
     Route: 048
     Dates: end: 20090129

REACTIONS (2)
  - STOMATITIS [None]
  - EATING DISORDER [None]
